FAERS Safety Report 21958008 (Version 11)
Quarter: 2024Q4

REPORT INFORMATION
  Report Type: Report from Study
  Country: US (occurrence: US)
  Receive Date: 20230206
  Receipt Date: 20241024
  Transmission Date: 20250115
  Serious: Yes (Hospitalization)
  Sender: NOVARTIS
  Company Number: US-002147023-NVSC2023US022328

PATIENT
  Age: 48 Year
  Sex: Female

DRUGS (4)
  1. KESIMPTA [Suspect]
     Active Substance: OFATUMUMAB
     Indication: Relapsing multiple sclerosis
     Dosage: 20 MG, QW
     Route: 058
     Dates: start: 20230128
  2. KESIMPTA [Suspect]
     Active Substance: OFATUMUMAB
     Dosage: UNK
     Route: 065
     Dates: start: 20230211
  3. KESIMPTA [Suspect]
     Active Substance: OFATUMUMAB
     Dosage: UNK
     Route: 058
  4. IRON [Concomitant]
     Active Substance: IRON
     Indication: Product used for unknown indication
     Dosage: UNK
     Route: 065

REACTIONS (27)
  - Lumbar spinal stenosis [Recovering/Resolving]
  - Nerve compression [Recovering/Resolving]
  - Gait disturbance [Unknown]
  - Influenza like illness [Recovering/Resolving]
  - Rhinorrhoea [Recovering/Resolving]
  - Muscle spasms [Recovering/Resolving]
  - Muscular weakness [Recovering/Resolving]
  - Dyspnoea [Recovering/Resolving]
  - Nausea [Recovering/Resolving]
  - Headache [Recovering/Resolving]
  - Chills [Recovering/Resolving]
  - Fatigue [Recovering/Resolving]
  - Pyrexia [Recovering/Resolving]
  - Pain [Recovering/Resolving]
  - Myalgia [Recovering/Resolving]
  - Diarrhoea [Recovering/Resolving]
  - Heart rate increased [Recovering/Resolving]
  - Oral infection [Unknown]
  - Palpitations [Unknown]
  - Limb discomfort [Unknown]
  - Arthralgia [Unknown]
  - Dizziness [Unknown]
  - Heavy menstrual bleeding [Unknown]
  - Anaemia [Unknown]
  - Pain in extremity [Unknown]
  - Back pain [Unknown]
  - Neuralgia [Unknown]

NARRATIVE: CASE EVENT DATE: 20230128
